FAERS Safety Report 4718673-2 (Version None)
Quarter: 2005Q3

REPORT INFORMATION
  Report Type: 
  Country: None (occurrence: None)
  Receive Date: 20050719
  Receipt Date: 20041118
  Transmission Date: 20060218
  Serious: Yes (Hospitalization, Other)
  Sender: FDA-Public Use
  Company Number: 2004241004US

PATIENT
  Age: 44 Year
  Sex: Male
  Weight: 173.2741 kg

DRUGS (8)
  1. CELEBREX [Suspect]
     Indication: ARTHRITIS
     Dosage: 200 MG (100 MG, 2 IN 1 D)
     Dates: start: 20020401, end: 20030201
  2. ASPIRIN [Suspect]
     Indication: ILL-DEFINED DISORDER
     Dosage: (81 MG)
  3. GEZOR (HYDROCHLOROTHIAZIDE, QUINAPRIL HYDROCHLORIDE) [Concomitant]
  4. ATORVASTATIN CALCIUM [Concomitant]
  5. VICODIN [Concomitant]
  6. PARACETAMOL [Concomitant]
  7. FAMOTIDINE [Concomitant]
  8. SILDENAFIL CITRATE [Concomitant]

REACTIONS (1)
  - GASTRIC HAEMORRHAGE [None]
